FAERS Safety Report 9016463 (Version 1)
Quarter: 2013Q1

REPORT INFORMATION
  Report Type: Report from Study
  Country: US (occurrence: US)
  Receive Date: 20130116
  Receipt Date: 20130116
  Transmission Date: 20140127
  Serious: Yes (Death, Other)
  Sender: FDA-Public Use
  Company Number: US-BAYER-2013-005023

PATIENT
  Age: 24 Year
  Sex: Female

DRUGS (8)
  1. DIPHENHYDRAMINE [Suspect]
  2. CLONAZEPAM [Suspect]
  3. KEPPRA [Suspect]
  4. ACETAMINOPHEN [Suspect]
  5. HYDROCODONE [Suspect]
  6. HYDROMORPHONE [Suspect]
  7. MEPROBAMATE [Suspect]
  8. METHADONE [Suspect]

REACTIONS (3)
  - Toxicity to various agents [Fatal]
  - Accident [Fatal]
  - Overdose [None]
